FAERS Safety Report 6601874-6 (Version None)
Quarter: 2010Q1

REPORT INFORMATION
  Report Type: 
  Country: None (occurrence: None)
  Receive Date: 20100225
  Receipt Date: 20100217
  Transmission Date: 20100710
  Serious: Yes (Hospitalization)
  Sender: FDA-Public Use
  Company Number: FR-ASTRAZENECA-2010SE07105

PATIENT
  Age: 21763 Day
  Sex: Male

DRUGS (4)
  1. FOSCAVIR [Suspect]
     Dosage: 6 G / 250 ML
     Route: 042
     Dates: start: 20100107, end: 20100118
  2. CYCLOSPORINE [Suspect]
     Route: 048
     Dates: start: 20091216, end: 20100120
  3. SOLU-MEDROL [Concomitant]
     Route: 065
     Dates: start: 20100109
  4. VFEND [Concomitant]
     Route: 065
     Dates: start: 20100101

REACTIONS (1)
  - RENAL TUBULAR NECROSIS [None]
